FAERS Safety Report 20918618 (Version 1)
Quarter: 2022Q2

REPORT INFORMATION
  Report Type: Spontaneous
  Country: US (occurrence: US)
  Receive Date: 20220606
  Receipt Date: 20220606
  Transmission Date: 20220721
  Serious: No
  Sender: FDA-Public Use
  Company Number: US-TERSERA THERAPEUTICS LLC-2022TRS001240

PATIENT

DRUGS (5)
  1. ZOLADEX [Suspect]
     Active Substance: GOSERELIN ACETATE
     Indication: Fibromyalgia
     Dosage: 10.8 MG, EVERY 3 MONTHS
     Route: 065
     Dates: start: 20210329, end: 20220216
  2. ZOLADEX [Suspect]
     Active Substance: GOSERELIN ACETATE
     Indication: Endometriosis
  3. ZOLADEX [Suspect]
     Active Substance: GOSERELIN ACETATE
     Indication: Fibromyalgia
     Dosage: UNK
     Route: 065
  4. ZOLADEX [Suspect]
     Active Substance: GOSERELIN ACETATE
     Indication: Endometriosis
  5. XYKAA RAPID [Concomitant]
     Indication: Product used for unknown indication
     Dosage: UNK
     Route: 065

REACTIONS (2)
  - Fibromyalgia [Unknown]
  - Off label use [Unknown]

NARRATIVE: CASE EVENT DATE: 20210329
